FAERS Safety Report 5146616-9 (Version None)
Quarter: 2006Q4

REPORT INFORMATION
  Report Type: 
  Country: None (occurrence: None)
  Receive Date: 20061102
  Receipt Date: 20061024
  Transmission Date: 20070319
  Serious: Yes (Other)
  Sender: FDA-Public Use
  Company Number: 2006097786

PATIENT
  Age: 66 Year
  Sex: Female
  Weight: 58 kg

DRUGS (1)
  1. XALATAN [Suspect]
     Indication: INTRAOCULAR PRESSURE TEST
     Dosage: 2 DROP (1 DROP, 2 IN 1 D), TOPICAL
     Route: 061

REACTIONS (7)
  - ERYTHEMA [None]
  - ERYTHEMA OF EYELID [None]
  - EYELID OEDEMA [None]
  - HYPERSENSITIVITY [None]
  - OCULAR HYPERAEMIA [None]
  - PRURITUS [None]
  - SKIN EXFOLIATION [None]
